FAERS Safety Report 4713508-6 (Version None)
Quarter: 2005Q3

REPORT INFORMATION
  Report Type: 
  Country: None (occurrence: None)
  Receive Date: 20050711
  Receipt Date: 20050629
  Transmission Date: 20060218
  Serious: Yes (Other)
  Sender: FDA-Public Use
  Company Number: 2005095519

PATIENT
  Sex: Female

DRUGS (3)
  1. ZOLOFT [Suspect]
     Indication: ILL-DEFINED DISORDER
     Dosage: 100 MG (50 MG,2 IN 1 D),ORAL
     Route: 048
     Dates: start: 20040801
  2. CALCIUM (CALCIUM) [Concomitant]
  3. LEXOTANIL (BROMAZEPAM) [Concomitant]

REACTIONS (3)
  - BLOOD CHOLESTEROL INCREASED [None]
  - CARBOHYDRATE ANTIGEN 15-3 INCREASED [None]
  - LOW DENSITY LIPOPROTEIN INCREASED [None]
